FAERS Safety Report 6946593-1 (Version None)
Quarter: 2010Q3

REPORT INFORMATION
  Report Type: 
  Country: None (occurrence: None)
  Receive Date: 20100824
  Receipt Date: 20100816
  Transmission Date: 20110219
  Serious: Yes (Death, Hospitalization)
  Sender: FDA-Public Use
  Company Number: 017227

PATIENT
  Age: 58 Year
  Sex: Female

DRUGS (8)
  1. KEPPRA [Suspect]
     Dosage: 1600 MG QD  ORAL),  (2400 MG QD ORAL)
     Route: 048
     Dates: start: 20060101, end: 20100501
  2. KEPPRA [Suspect]
     Dosage: 1600 MG QD  ORAL),  (2400 MG QD ORAL)
     Route: 048
     Dates: start: 20100501, end: 20100701
  3. FRISIUM (NOT SPECIFIED) [Suspect]
     Dosage: (5 MG QD ORAL)
     Route: 048
     Dates: start: 20100603, end: 20100618
  4. EQUANIL [Suspect]
     Dosage: (400 MG QD ORAL)
     Route: 048
     Dates: start: 20030101, end: 20100702
  5. LEPTICUR [Suspect]
     Dosage: (20 MG BID ORAL)
     Route: 048
     Dates: start: 20100615
  6. ACETAMINOPHEN [Suspect]
     Dosage: (1500 MG QD ORAL)
     Route: 048
     Dates: start: 20100605, end: 20100701
  7. TOPIRAMATE [Suspect]
     Dosage: (300 MG QD ORAL)
     Route: 048
     Dates: start: 20010101
  8. FLUPENTIXOL [Suspect]
     Dosage: (20 MG/ML INTRAMUSCULAR)
     Route: 030
     Dates: start: 20010101, end: 20100607

REACTIONS (12)
  - ANTI-HBC ANTIBODY POSITIVE [None]
  - BLOOD THROMBOPLASTIN DECREASED [None]
  - BUDD-CHIARI SYNDROME [None]
  - CYTOLYTIC HEPATITIS [None]
  - EPILEPSY [None]
  - HAEMATEMESIS [None]
  - HEPATIC FIBROSIS [None]
  - HEPATIC NECROSIS [None]
  - HEPATITIS ACUTE [None]
  - JAUNDICE [None]
  - PROTHROMBIN LEVEL DECREASED [None]
  - PROTHROMBIN TIME RATIO DECREASED [None]
